FAERS Safety Report 22312310 (Version 2)
Quarter: 2023Q2

REPORT INFORMATION
  Report Type: Spontaneous
  Country: US (occurrence: None)
  Receive Date: 20230512
  Receipt Date: 20230516
  Transmission Date: 20230721
  Serious: Yes (Other)
  Sender: FDA-Public Use
  Company Number: US-ROCHE-3345369

PATIENT
  Sex: Female

DRUGS (1)
  1. OCREVUS [Suspect]
     Active Substance: OCRELIZUMAB
     Indication: Product used for unknown indication
     Route: 065

REACTIONS (5)
  - Multiple sclerosis relapse [Unknown]
  - Systemic scleroderma [Unknown]
  - Rheumatoid arthritis [Unknown]
  - Idiopathic intracranial hypertension [Unknown]
  - Multiple sclerosis pseudo relapse [Unknown]
